FAERS Safety Report 21666627 (Version 2)
Quarter: 2022Q4

REPORT INFORMATION
  Report Type: Report from Study
  Country: US (occurrence: US)
  Receive Date: 20221201
  Receipt Date: 20221201
  Transmission Date: 20230113
  Serious: Yes (Other)
  Sender: FDA-Public Use
  Company Number: US-CELGENE-163-21880-13125115

PATIENT
  Sex: Female

DRUGS (7)
  1. LENALIDOMIDE [Suspect]
     Active Substance: LENALIDOMIDE
     Indication: Product used for unknown indication
     Route: 050
     Dates: start: 201202
  2. LENALIDOMIDE [Suspect]
     Active Substance: LENALIDOMIDE
     Route: 050
     Dates: start: 201304
  3. LENALIDOMIDE [Suspect]
     Active Substance: LENALIDOMIDE
     Route: 050
     Dates: start: 201307
  4. LENALIDOMIDE [Suspect]
     Active Substance: LENALIDOMIDE
     Route: 050
     Dates: start: 20131209
  5. ACYCLOVIR [Concomitant]
     Active Substance: ACYCLOVIR
     Indication: Product used for unknown indication
     Dosage: THREE TIMES A DAY
     Route: 050
  6. BACTRIM DS [Concomitant]
     Active Substance: SULFAMETHOXAZOLE\TRIMETHOPRIM
     Indication: Product used for unknown indication
     Route: 050
  7. VITAMINS [Concomitant]
     Active Substance: VITAMINS
     Indication: Product used for unknown indication
     Route: 050

REACTIONS (2)
  - Accidental exposure to product [Unknown]
  - Exposure during pregnancy [Unknown]

NARRATIVE: CASE EVENT DATE: 20131230
